FAERS Safety Report 6031847-6 (Version None)
Quarter: 2008Q4

REPORT INFORMATION
  Report Type: 
  Country: None (occurrence: None)
  Receive Date: 20081224
  Receipt Date: 20080828
  Transmission Date: 20090506
  Serious: No
  Sender: FDA-Public Use
  Company Number: 2008PV036592

PATIENT
  Age: 65 Year
  Sex: Female

DRUGS (13)
  1. SYMLIN [Suspect]
     Indication: TYPE 2 DIABETES MELLITUS
     Dosage: 60 MCG; TID; SC, 30 MCG; TID; SC
     Route: 058
     Dates: start: 20080101, end: 20080101
  2. SYMLIN [Suspect]
     Indication: TYPE 2 DIABETES MELLITUS
     Dosage: 60 MCG; TID; SC, 30 MCG; TID; SC
     Route: 058
     Dates: start: 20080101, end: 20080101
  3. LANTUS [Concomitant]
  4. LISINOPRIL [Concomitant]
  5. BYETTA [Concomitant]
  6. FUROSEMIDE [Concomitant]
  7. ASPIRIN [Concomitant]
  8. CALCIUM [Concomitant]
  9. MULTI-VITAMINS [Concomitant]
  10. LIPITOR [Concomitant]
  11. XALATAN [Concomitant]
  12. COSOPT [Concomitant]
  13. HUMALOG [Concomitant]

REACTIONS (4)
  - DRUG INEFFECTIVE [None]
  - GLYCOSYLATED HAEMOGLOBIN INCREASED [None]
  - HYPOTENSION [None]
  - SYNCOPE [None]
